FAERS Safety Report 17554113 (Version 2)
Quarter: 2020Q2

REPORT INFORMATION
  Report Type: Report from Study
  Country: None (occurrence: BR)
  Receive Date: 20200317
  Receipt Date: 20200417
  Transmission Date: 20200713
  Serious: Yes (Hospitalization, Other)
  Sender: FDA-Public Use
  Company Number: BR-ABBVIE-20K-020-3318052-00

PATIENT
  Age: 24 Year
  Sex: Female
  Weight: 75 kg

DRUGS (10)
  1. CLAVULIN BD [Suspect]
     Active Substance: AMOXICILLIN\CLAVULANATE POTASSIUM
     Indication: TONSILLITIS
     Dosage: 2 TIMES A DAY
     Route: 065
     Dates: start: 20200221, end: 20200302
  2. HUMIRA [Suspect]
     Active Substance: ADALIMUMAB
     Route: 058
     Dates: start: 20200311, end: 20200311
  3. REUQUINOL [Concomitant]
     Active Substance: HYDROXYCHLOROQUINE SULFATE
     Indication: SYSTEMIC LUPUS ERYTHEMATOSUS
     Route: 065
  4. ZOLPIDEM [Concomitant]
     Active Substance: ZOLPIDEM TARTRATE
     Indication: INSOMNIA
     Dosage: EVERYDAY
  5. RESTIVA [Concomitant]
     Active Substance: BUPRENORPHINE
     Indication: PAIN
     Dosage: CHANGE THE PATCH EVERY 7 DAYS
     Dates: start: 201903
  6. PREBICTAL [Concomitant]
     Active Substance: PREGABALIN
     Indication: PAIN
     Dosage: 3 TIMES A DAY
     Dates: start: 2019
  7. HUMIRA [Suspect]
     Active Substance: ADALIMUMAB
     Indication: CROHN^S DISEASE
     Dosage: LOADING DOSE
     Route: 058
     Dates: start: 20200217, end: 20200217
  8. ROCEFIN [Suspect]
     Active Substance: CEFTRIAXONE SODIUM
     Indication: TONSILLITIS
     Route: 042
     Dates: start: 20200303, end: 20200309
  9. HUMIRA [Suspect]
     Active Substance: ADALIMUMAB
     Route: 058
     Dates: start: 2020
  10. PREDNISONE. [Suspect]
     Active Substance: PREDNISONE
     Indication: CROHN^S DISEASE
     Route: 048
     Dates: start: 2016

REACTIONS (10)
  - Weight increased [Unknown]
  - Arthralgia [Not Recovered/Not Resolved]
  - Diarrhoea [Recovered/Resolved]
  - Weight decreased [Recovered/Resolved]
  - Crohn^s disease [Recovered/Resolved]
  - Vomiting [Recovered/Resolved]
  - Tonsillolith [Recovered/Resolved]
  - Tonsillitis [Recovered/Resolved]
  - Therapeutic response unexpected [Unknown]
  - Intestinal haemorrhage [Recovered/Resolved]

NARRATIVE: CASE EVENT DATE: 2020
